FAERS Safety Report 13927651 (Version 4)
Quarter: 2018Q2

REPORT INFORMATION
  Report Type: Report from Study
  Country: RU (occurrence: RU)
  Receive Date: 20170831
  Receipt Date: 20180424
  Transmission Date: 20180711
  Serious: Yes (Life-Threatening, Hospitalization)
  Sender: FDA-Public Use
  Company Number: RU-ARIAD PHARMACEUTICALS, INC-2017RU008812

PATIENT
  Age: 57 Year
  Sex: Female
  Weight: 69 kg

DRUGS (11)
  1. QUINAX [Concomitant]
     Indication: RETINOPATHY
     Dosage: UNK
     Route: 047
     Dates: start: 20170719
  2. PONATINIB [Suspect]
     Active Substance: PONATINIB
     Indication: CHRONIC MYELOID LEUKAEMIA
     Dosage: 45 MG, QD
     Route: 048
     Dates: start: 20170801, end: 20170828
  3. ATORVASTATINUM [Concomitant]
     Indication: HYPERTENSION
     Dosage: UNK
     Route: 048
     Dates: start: 2013
  4. ATORVASTATINUM [Concomitant]
     Indication: DIABETES MELLITUS
  5. SYSTANE ULTRA [Concomitant]
     Active Substance: POLYETHYLENE GLYCOL 400\PROPYLENE GLYCOL
     Indication: DRY EYE
     Dosage: UNK
     Route: 047
     Dates: start: 20170719
  6. ACETYLSALICYLIC ACID [Concomitant]
     Active Substance: ASPIRIN
     Indication: THROMBOSIS PROPHYLAXIS
     Dosage: UNK
     Route: 048
     Dates: start: 20170801
  7. AMLODIPINE W/INDAPAMIDE/PERINDOPRIL [Concomitant]
     Indication: HYPERTENSION
     Dosage: UNK
     Route: 048
     Dates: start: 201402
  8. DIABETON                           /00413701/ [Concomitant]
     Indication: DIABETES MELLITUS
     Dosage: UNK
     Route: 048
     Dates: start: 20170524
  9. SIOFOR [Concomitant]
     Active Substance: METFORMIN HYDROCHLORIDE
     Indication: DIABETES MELLITUS
     Dosage: UNK
     Route: 048
     Dates: start: 20170524
  10. GALVUS [Concomitant]
     Active Substance: VILDAGLIPTIN
     Indication: DIABETES MELLITUS
     Dosage: UNK
     Route: 048
  11. ALLOPURINOLUM [Concomitant]
     Indication: TUMOUR LYSIS SYNDROME
     Dosage: UNK
     Route: 048
     Dates: start: 20170801

REACTIONS (1)
  - Thrombocytopenia [Recovered/Resolved with Sequelae]

NARRATIVE: CASE EVENT DATE: 20170829
